FAERS Safety Report 18716191 (Version 2)
Quarter: 2022Q3

REPORT INFORMATION
  Report Type: Spontaneous
  Country: JP (occurrence: JP)
  Receive Date: 20210108
  Receipt Date: 20220714
  Transmission Date: 20221026
  Serious: Yes (Disabling, Other)
  Sender: FDA-Public Use
  Company Number: JP-GLAXOSMITHKLINE-JP2021JPN001495

PATIENT

DRUGS (15)
  1. VALACYCLOVIR [Suspect]
     Active Substance: VALACYCLOVIR HYDROCHLORIDE
     Indication: Herpes virus infection
     Dosage: 1000 MG, BID
     Route: 048
     Dates: start: 20200424
  2. CALONAL [Suspect]
     Active Substance: ACETAMINOPHEN
     Dosage: 500 MG, QD
     Route: 048
     Dates: start: 20200425
  3. LOXOPROFEN SODIUM [Suspect]
     Active Substance: LOXOPROFEN SODIUM
     Dosage: 60 MG, QD
     Route: 048
     Dates: start: 20200425
  4. MIYA-BM FINE GRANULES [Concomitant]
     Dosage: UNK
  5. RACOL-NF [Concomitant]
     Dosage: UNK
  6. ELENTAL COMBINATION ORAL AGENT [Concomitant]
     Dosage: UNK
  7. GASTER [Concomitant]
     Active Substance: FAMOTIDINE
     Dosage: UNK
  8. ZOLPIDEM TARTRATE [Concomitant]
     Active Substance: ZOLPIDEM TARTRATE
     Dosage: UNK
  9. LOPEMIN CAPSULES [Concomitant]
     Dosage: UNK, PRN
  10. NOBELZIN TABLETS [Concomitant]
     Dosage: UNK
  11. ONEALFA TABLETS [Concomitant]
     Dosage: UNK
  12. GLAKAY CAPSULE [Concomitant]
     Dosage: UNK
  13. RIZE TABLETS [Concomitant]
     Dosage: UNK, PRN
  14. IFENPRODIL [Concomitant]
     Active Substance: IFENPRODIL
     Dosage: UNK
  15. METHYLCOBALAMIN [Concomitant]
     Active Substance: METHYLCOBALAMIN
     Dosage: UNK

REACTIONS (6)
  - Renal impairment [Recovering/Resolving]
  - Facial paralysis [Unknown]
  - Pyrexia [Unknown]
  - Decreased appetite [Unknown]
  - Fluid intake reduced [Unknown]
  - Urine output decreased [Unknown]

NARRATIVE: CASE EVENT DATE: 20200425
